FAERS Safety Report 11734866 (Version 1)
Quarter: 2015Q4

REPORT INFORMATION
  Report Type: Spontaneous
  Country: US (occurrence: None)
  Receive Date: 20151112
  Receipt Date: 20151112
  Transmission Date: 20160304
  Serious: Yes (Other)
  Sender: FDA-Public Use
  Company Number: None

PATIENT
  Age: 71 Year
  Sex: Female
  Weight: 70.76 kg

DRUGS (3)
  1. CLARITHROMYCIN 500MG TABLETS QTY 20 MFG. ZYDUS [Suspect]
     Active Substance: CLARITHROMYCIN
     Indication: COUGH
     Dosage: 1 PILL
     Route: 048
     Dates: start: 20150925, end: 20151004
  2. CLARITHROMYCIN 500MG TABLETS QTY 20 MFG. ZYDUS [Suspect]
     Active Substance: CLARITHROMYCIN
     Indication: INFLUENZA
     Dosage: 1 PILL
     Route: 048
     Dates: start: 20150925, end: 20151004
  3. CLARITHROMYCIN 500MG TABLETS QTY 20 MFG. ZYDUS [Suspect]
     Active Substance: CLARITHROMYCIN
     Indication: OROPHARYNGEAL PAIN
     Dosage: 1 PILL
     Route: 048
     Dates: start: 20150925, end: 20151004

REACTIONS (1)
  - Vertigo [None]

NARRATIVE: CASE EVENT DATE: 20150929
